FAERS Safety Report 17220018 (Version 4)
Quarter: 2020Q3

REPORT INFORMATION
  Report Type: Spontaneous
  Country: US (occurrence: US)
  Receive Date: 20191231
  Receipt Date: 20200904
  Transmission Date: 20201102
  Serious: Yes (Hospitalization)
  Sender: FDA-Public Use
  Company Number: US-SA-2019SA361357

PATIENT

DRUGS (2)
  1. DUPIXENT [Suspect]
     Active Substance: DUPILUMAB
     Dosage: 300 MG, QOW
     Route: 058
     Dates: start: 20191212, end: 2020
  2. DUPIXENT [Suspect]
     Active Substance: DUPILUMAB
     Indication: DERMATITIS ATOPIC
     Dosage: 600 MG, 1X
     Route: 058
     Dates: start: 20191201, end: 20191201

REACTIONS (3)
  - Infection [Not Recovered/Not Resolved]
  - Surgery [Recovering/Resolving]
  - Dermatitis atopic [Unknown]
